FAERS Safety Report 24715961 (Version 1)
Quarter: 2024Q4

REPORT INFORMATION
  Report Type: Report from Study
  Country: DE (occurrence: DE)
  Receive Date: 20241210
  Receipt Date: 20241210
  Transmission Date: 20250115
  Serious: Yes (Other)
  Sender: UCB
  Company Number: DE-UCBSA-2024063640

PATIENT
  Sex: Female
  Weight: 120 kg

DRUGS (9)
  1. BIMEKIZUMAB [Suspect]
     Active Substance: BIMEKIZUMAB
     Indication: Axial spondyloarthritis
     Dosage: 160 MILLIGRAM, EV 4 WEEKS
     Dates: start: 20240224
  2. BETAMETHASONE DIPROPIONATE\CALCIPOTRIENE [Concomitant]
     Active Substance: BETAMETHASONE DIPROPIONATE\CALCIPOTRIENE
     Indication: Psoriasis
     Dosage: 50 MCG ONCE DAILY
     Dates: start: 2023
  3. CANDESARTAN [Concomitant]
     Active Substance: CANDESARTAN
     Indication: Hypertension
     Dosage: 160 MILLIGRAM, ONCE DAILY (QD)
     Dates: start: 2021
  4. BISOPROLOL [Concomitant]
     Active Substance: BISOPROLOL
     Indication: Hypertension
     Dosage: 2.5 MILLIGRAM, ONCE DAILY (QD)
     Dates: start: 2018
  5. TORSEMIDE [Concomitant]
     Active Substance: TORSEMIDE
     Indication: Hypertension
     Dosage: 10 MILLIGRAM, ONCE DAILY (QD)
     Dates: start: 2008
  6. FOSTERA [Concomitant]
     Indication: Chronic obstructive pulmonary disease
     Dosage: 200 MCG, TWICE A DAY
     Dates: start: 2020
  7. ALBUTEROL [Concomitant]
     Active Substance: ALBUTEROL
     Indication: Chronic obstructive pulmonary disease
     Dosage: 0.1 MILLIGRAM, AS NEEDED
     Dates: start: 2018
  8. AMITRIPTYLINE HYDROCHLORIDE [Concomitant]
     Active Substance: AMITRIPTYLINE HYDROCHLORIDE
     Indication: Prophylaxis
     Dosage: 25 MILLIGRAM, ONCE DAILY (QD)
     Dates: start: 2021
  9. OXYCODONE [Concomitant]
     Active Substance: OXYCODONE
     Indication: Axial spondyloarthritis
     Dosage: 5 MILLIGRAM, 2X/DAY (BID)
     Dates: start: 20220322

REACTIONS (1)
  - Pneumonia [Recovered/Resolved]

NARRATIVE: CASE EVENT DATE: 20241108
